FAERS Safety Report 5755603-9 (Version None)
Quarter: 2008Q2

REPORT INFORMATION
  Report Type: 
  Country: None (occurrence: None)
  Receive Date: 20080602
  Receipt Date: 20080527
  Transmission Date: 20081010
  Serious: Yes (Life-Threatening, Hospitalization)
  Sender: FDA-Public Use
  Company Number: US-JNJFOC-20080505454

PATIENT
  Age: 5 Year
  Sex: Male
  Weight: 25 kg

DRUGS (2)
  1. RISPERDAL [Suspect]
     Indication: DRUG USE FOR UNKNOWN INDICATION
     Route: 048
  2. VALPROIC ACID [Suspect]
     Indication: ABNORMAL BEHAVIOUR
     Route: 048

REACTIONS (7)
  - AGRANULOCYTOSIS [None]
  - BONE MARROW FAILURE [None]
  - DRUG TOXICITY [None]
  - HEPATIC ENZYME INCREASED [None]
  - NEUTROPENIA [None]
  - SEPTIC SHOCK [None]
  - THROMBOCYTOPENIA [None]
